FAERS Safety Report 11187093 (Version 1)
Quarter: 2015Q2

REPORT INFORMATION
  Report Type: Spontaneous
  Country: US (occurrence: US)
  Receive Date: 20150615
  Receipt Date: 20150615
  Transmission Date: 20150821
  Serious: No
  Sender: FDA-Public Use
  Company Number: US-JNJFOC-20150502937

PATIENT
  Sex: Female
  Weight: 77.11 kg

DRUGS (2)
  1. REMICADE [Suspect]
     Active Substance: INFLIXIMAB
     Indication: CROHN^S DISEASE
     Dosage: 4 VIALS
     Route: 042
     Dates: start: 20150505
  2. REMICADE [Suspect]
     Active Substance: INFLIXIMAB
     Indication: DIVERTICULUM
     Dosage: 4 VIALS
     Route: 042
     Dates: start: 20150505

REACTIONS (1)
  - Wrong technique in drug usage process [Unknown]
